FAERS Safety Report 6643241-5 (Version None)
Quarter: 2010Q1

REPORT INFORMATION
  Report Type: 
  Country: None (occurrence: None)
  Receive Date: 20100319
  Receipt Date: 20090803
  Transmission Date: 20100710
  Serious: Yes (Hospitalization, Other)
  Sender: FDA-Public Use
  Company Number: FR-SANOFI-AVENTIS-200912837FR

PATIENT
  Age: 48 Year
  Sex: Female

DRUGS (7)
  1. CHLOROQUINE PHOSPHATE [Suspect]
     Route: 048
     Dates: end: 20000301
  2. CHLOROQUINE PHOSPHATE [Suspect]
     Route: 048
     Dates: end: 20000301
  3. CHLOROQUINE PHOSPHATE [Suspect]
     Route: 048
     Dates: start: 20001001, end: 20040201
  4. CHLOROQUINE PHOSPHATE [Suspect]
     Route: 048
     Dates: start: 20001001, end: 20040201
  5. CHLOROQUINE PHOSPHATE [Suspect]
     Route: 048
     Dates: start: 20040601
  6. CHLOROQUINE PHOSPHATE [Suspect]
     Route: 048
     Dates: start: 20040601
  7. ATENOLOL [Concomitant]
     Route: 048
     Dates: start: 20000101

REACTIONS (6)
  - ATRIOVENTRICULAR BLOCK COMPLETE [None]
  - CONVULSION [None]
  - DRUG LEVEL ABOVE THERAPEUTIC [None]
  - OVERDOSE [None]
  - RETINOGRAM ABNORMAL [None]
  - VISUAL FIELD DEFECT [None]
